FAERS Safety Report 18731340 (Version 1)
Quarter: 2021Q1

REPORT INFORMATION
  Report Type: Spontaneous
  Country: DE (occurrence: CN)
  Receive Date: 20210112
  Receipt Date: 20210112
  Transmission Date: 20210419
  Serious: Yes (Hospitalization)
  Sender: FDA-Public Use
  Company Number: CN-ELI_LILLY_AND_COMPANY-CN202101002868

PATIENT
  Age: 62 Year
  Sex: Female
  Weight: 52 kg

DRUGS (2)
  1. AILIN [Suspect]
     Active Substance: TETRAHYDROZOLINE HYDROCHLORIDE
     Indication: RECTAL CANCER
     Dosage: 260 MG, DAILY
     Route: 041
     Dates: start: 20201221, end: 20201221
  2. ERBITUX [Suspect]
     Active Substance: CETUXIMAB
     Indication: RECTAL CANCER
     Dosage: 700 MG, UNK (0.9% SODIUM CHLORIDE INJECTION 200ML BY INTRAVENOUS DRIP FOR SINGLE USE)
     Route: 041
     Dates: start: 20201221, end: 20201221

REACTIONS (1)
  - Myelosuppression [Unknown]

NARRATIVE: CASE EVENT DATE: 20201230
